FAERS Safety Report 6535910-2 (Version None)
Quarter: 2010Q1

REPORT INFORMATION
  Report Type: 
  Country: None (occurrence: None)
  Receive Date: 20100113
  Receipt Date: 20100104
  Transmission Date: 20100710
  Serious: Yes (Hospitalization)
  Sender: FDA-Public Use
  Company Number: ES-ABBOTT-10P-144-0617485-00

PATIENT
  Sex: Female

DRUGS (1)
  1. DEPAKENE [Suspect]
     Indication: CONVULSION
     Route: 048
     Dates: start: 20090619, end: 20090828

REACTIONS (5)
  - BLISTER [None]
  - CHILLS [None]
  - ERYTHEMA [None]
  - RENAL IMPAIRMENT [None]
  - TOXIC SKIN ERUPTION [None]
